FAERS Safety Report 5299497-7 (Version None)
Quarter: 2007Q1

REPORT INFORMATION
  Report Type: 
  Country: None (occurrence: None)
  Receive Date: 20070201
  Receipt Date: 20061030
  Transmission Date: 20070707
  Serious: No
  Sender: FDA-Public Use
  Company Number: 2006PV024184

PATIENT
  Age: 76 Year
  Sex: Female

DRUGS (5)
  1. BYETTA [Suspect]
     Indication: DIABETES MELLITUS NON-INSULIN-DEPENDENT
     Dosage: 5 MCG;BID;SC
     Route: 058
     Dates: start: 20061001
  2. REGULAR INSULIN [Concomitant]
  3. ISOPHANE INSULIN [Concomitant]
  4. VYTORIN [Concomitant]
  5. INSULIN RAPID ACTING [Concomitant]

REACTIONS (8)
  - BLOOD GLUCOSE DECREASED [None]
  - DYSPEPSIA [None]
  - ERUCTATION [None]
  - FATIGUE [None]
  - HEADACHE [None]
  - NAUSEA [None]
  - POOR QUALITY SLEEP [None]
  - SLUGGISHNESS [None]
